FAERS Safety Report 18375013 (Version 3)
Quarter: 2021Q2

REPORT INFORMATION
  Report Type: Report from Study
  Country: US (occurrence: US)
  Receive Date: 20201013
  Receipt Date: 20210421
  Transmission Date: 20210717
  Serious: Yes (Other)
  Sender: FDA-Public Use
  Company Number: US-SHIRE-US202027694

PATIENT
  Age: 69 Year
  Sex: Male
  Weight: 59 kg

DRUGS (29)
  1. TEDUGLUTIDE [Suspect]
     Active Substance: TEDUGLUTIDE
     Indication: SHORT-BOWEL SYNDROME
     Dosage: 0.328 UNK, QD
     Route: 050
     Dates: start: 20200417
  2. PLAVIX [Concomitant]
     Active Substance: CLOPIDOGREL BISULFATE
  3. OPIUM TINCTURE [Concomitant]
     Active Substance: MORPHINE
  4. VITAMIN B12 [Concomitant]
     Active Substance: CYANOCOBALAMIN
  5. HUMERA [Concomitant]
     Active Substance: ADALIMUMAB
  6. GABAPENTIN. [Concomitant]
     Active Substance: GABAPENTIN
  7. TEDUGLUTIDE [Suspect]
     Active Substance: TEDUGLUTIDE
     Indication: SHORT-BOWEL SYNDROME
     Dosage: 0.328 UNK, QD
     Route: 058
     Dates: start: 20200417
  8. TEDUGLUTIDE [Suspect]
     Active Substance: TEDUGLUTIDE
     Dosage: 0.328 MILLILITER
     Route: 065
  9. VITAMIN D3 [Concomitant]
     Active Substance: CHOLECALCIFEROL
  10. METRONIDAZOLE. [Concomitant]
     Active Substance: METRONIDAZOLE
  11. PREDNISONE. [Concomitant]
     Active Substance: PREDNISONE
  12. MUCINEX [Concomitant]
     Active Substance: GUAIFENESIN
  13. TEDUGLUTIDE [Suspect]
     Active Substance: TEDUGLUTIDE
     Indication: SHORT-BOWEL SYNDROME
     Dosage: 0.328 UNK, QD
     Route: 058
     Dates: start: 20200417
  14. TEDUGLUTIDE [Suspect]
     Active Substance: TEDUGLUTIDE
     Indication: SHORT-BOWEL SYNDROME
     Dosage: 0.328 UNK, QD
     Route: 050
     Dates: start: 20200417
  15. TEDUGLUTIDE [Suspect]
     Active Substance: TEDUGLUTIDE
     Indication: SHORT-BOWEL SYNDROME
     Dosage: 0.328 UNK, QD
     Route: 050
     Dates: start: 20200417
  16. TEDUGLUTIDE [Suspect]
     Active Substance: TEDUGLUTIDE
     Dosage: 0.328 MILLILITER
     Route: 065
  17. METFORMIN [Concomitant]
     Active Substance: METFORMIN HYDROCHLORIDE
  18. ALLEGRA ALLERGY [Concomitant]
     Active Substance: FEXOFENADINE HYDROCHLORIDE
  19. PANTOPRAZOLE SODIUM. [Concomitant]
     Active Substance: PANTOPRAZOLE SODIUM
  20. SINGULAIR [Concomitant]
     Active Substance: MONTELUKAST SODIUM
  21. TEDUGLUTIDE [Suspect]
     Active Substance: TEDUGLUTIDE
     Dosage: 0.328 MILLILITER
     Route: 065
  22. TEDUGLUTIDE [Suspect]
     Active Substance: TEDUGLUTIDE
     Indication: SHORT-BOWEL SYNDROME
     Dosage: 0.328 UNK, QD
     Route: 058
     Dates: start: 20200417
  23. TEDUGLUTIDE [Suspect]
     Active Substance: TEDUGLUTIDE
     Indication: SHORT-BOWEL SYNDROME
     Dosage: 0.328 UNK, QD
     Route: 058
     Dates: start: 20200417
  24. TEDUGLUTIDE [Suspect]
     Active Substance: TEDUGLUTIDE
     Dosage: 0.328 MILLILITER
     Route: 065
  25. BUPRION [Concomitant]
     Active Substance: BUPROPION HYDROCHLORIDE
  26. VIBERZI [Concomitant]
     Active Substance: ELUXADOLINE
  27. AZATHIOPRINE. [Concomitant]
     Active Substance: AZATHIOPRINE
  28. AMITRIPTYLIN [Concomitant]
     Active Substance: AMITRIPTYLINE
  29. TEDUGLUTIDE [Suspect]
     Active Substance: TEDUGLUTIDE
     Indication: SHORT-BOWEL SYNDROME
     Dosage: 0.328 UNK, QD
     Route: 050
     Dates: start: 20200417

REACTIONS (6)
  - Procedural site reaction [Unknown]
  - Unevaluable event [Unknown]
  - Product reconstitution quality issue [Unknown]
  - Limb mass [Recovered/Resolved]
  - Product dose omission issue [Recovered/Resolved]
  - Gastrointestinal disorder [Unknown]

NARRATIVE: CASE EVENT DATE: 20201008
